FAERS Safety Report 8387359-8 (Version None)
Quarter: 2012Q2

REPORT INFORMATION
  Report Type: 
  Country: None (occurrence: None)
  Receive Date: 20120525
  Receipt Date: 20120519
  Transmission Date: 20120825
  Serious: Yes (Life-Threatening, Hospitalization, Other)
  Sender: FDA-Public Use
  Company Number: US-ROCHE-783127

PATIENT
  Age: 57 Year
  Sex: Female
  Weight: 90 kg

DRUGS (5)
  1. PACLITAXEL [Suspect]
     Indication: NEOPLASM MALIGNANT
     Dosage: OVER 03 HOURS ON DAY 01; CYCLE=21 DAYS, TOTAL DOSE: 175 MG, LAST ADMINISTERED: 31 JULY 2011
     Route: 042
  2. CARBOPLATIN [Suspect]
     Indication: NEOPLASM MALIGNANT
     Dosage: AUC 05 OVER 30 MIN ON DAY 01; CYCLE=21 DAYS, TOTAL DOSE: 467 MG, LAST DOSE ADMINISTERED: 31 JULY 201
     Route: 042
  3. AVASTIN [Suspect]
     Indication: NEOPLASM MALIGNANT
     Dosage: CYCLE= 21 DAYS; OVER 30-90 MIN ON DAY 01, TOTAL DOSE: 1350 MG, LAST DATE ADMINISTERED: 8 MARCH 2011
     Route: 042
  4. ASPIRIN [Suspect]
     Indication: PRODUCT USED FOR UNKNOWN INDICATION
  5. DOCETAXEL [Suspect]
     Indication: NEOPLASM MALIGNANT
     Dosage: OVER 01 HOUR ON DAY 01; CYCLE=21 DAYS
     Route: 042

REACTIONS (6)
  - CEREBRAL ISCHAEMIA [None]
  - ABDOMINAL PAIN [None]
  - DYSPNOEA [None]
  - VISION BLURRED [None]
  - SMALL INTESTINAL OBSTRUCTION [None]
  - GASTRIC HAEMORRHAGE [None]
